FAERS Safety Report 4407505-8 (Version None)
Quarter: 2004Q3

REPORT INFORMATION
  Report Type: 
  Country: None (occurrence: None)
  Receive Date: 20040721
  Receipt Date: 20040709
  Transmission Date: 20050211
  Serious: Yes (Hospitalization)
  Sender: FDA-Public Use
  Company Number: 24320

PATIENT
  Age: 52 Year
  Sex: Male

DRUGS (3)
  1. FLECAINIDE ACETATE [Suspect]
     Indication: PAROXYSMAL ARRHYTHMIA
     Dosage: 200 MG (100 MG, 2 IN 1 DAY(S)) ORAL
     Route: 048
     Dates: start: 20040605, end: 20040701
  2. FLECAINIDE ACETATE [Suspect]
     Indication: PAROXYSMAL ARRHYTHMIA
     Dosage: 200 MG (100 MG, 2 IN 1 DAY(S)) ORAL
     Route: 048
     Dates: start: 20040701
  3. PREVISCAN (FLUINDIONE) [Concomitant]

REACTIONS (4)
  - CONSTIPATION [None]
  - DIVERTICULITIS [None]
  - INTERNATIONAL NORMALISED RATIO INCREASED [None]
  - SIGMOIDITIS [None]
